FAERS Safety Report 4694903-0 (Version None)
Quarter: 2005Q2

REPORT INFORMATION
  Report Type: 
  Country: None (occurrence: None)
  Receive Date: 20050617
  Receipt Date: 20050524
  Transmission Date: 20051028
  Serious: Yes (Other)
  Sender: FDA-Public Use
  Company Number: 2005-0008395

PATIENT

DRUGS (2)
  1. VISTIDE [Suspect]
     Indication: CYTOMEGALOVIRUS CHORIORETINITIS
     Dosage: 20 MGC
  2. PROBENECID (PROBNECID) [Concomitant]

REACTIONS (9)
  - BLINDNESS [None]
  - CATARACT SUBCAPSULAR [None]
  - HYPOTONIA [None]
  - HYPOTONY OF EYE [None]
  - INTRAOCULAR PRESSURE DECREASED [None]
  - IRIS ADHESIONS [None]
  - IRITIS [None]
  - PAPILLOEDEMA [None]
  - RETINOPATHY [None]
